FAERS Safety Report 8141828-4 (Version None)
Quarter: 2012Q1

REPORT INFORMATION
  Report Type: 
  Country: None (occurrence: None)
  Receive Date: 20120216
  Receipt Date: 20120210
  Transmission Date: 20120608
  Serious: Yes (Death)
  Sender: FDA-Public Use
  Company Number: FR-ELI_LILLY_AND_COMPANY-FR201202003369

PATIENT
  Age: 54 Year
  Sex: Male

DRUGS (2)
  1. ZINC GLUCONATE [Concomitant]
     Dosage: UNK, UNKNOWN
     Route: 048
  2. EFFIENT [Suspect]
     Indication: STENT PLACEMENT
     Dosage: 10 MG, QD
     Route: 048

REACTIONS (3)
  - DRUG DISPENSING ERROR [None]
  - THROMBOSIS IN DEVICE [None]
  - DRUG DOSE OMISSION [None]
